FAERS Safety Report 4266735-9 (Version None)
Quarter: 2004Q1

REPORT INFORMATION
  Report Type: 
  Country: None (occurrence: None)
  Receive Date: 20040108
  Receipt Date: 20031208
  Transmission Date: 20041129
  Serious: Yes (Death, Hospitalization)
  Sender: FDA-Public Use
  Company Number: JP-GLAXOSMITHKLINE-B0317333A

PATIENT
  Age: 67 Year
  Sex: Male

DRUGS (5)
  1. PAROXETINE HCL [Suspect]
     Indication: DEPRESSION
     Dosage: 10MG PER DAY
     Route: 048
     Dates: start: 20031004
  2. PAROXETINE HCL [Suspect]
     Indication: STUPOR
     Dosage: 10MG PER DAY
     Route: 048
     Dates: start: 20031004
  3. UFT [Suspect]
  4. BROTIZOLAM [Concomitant]
     Route: 048
  5. HALOPERIDOL [Concomitant]
     Route: 065

REACTIONS (1)
  - HEPATITIS FULMINANT [None]
